FAERS Safety Report 6927399-6 (Version None)
Quarter: 2010Q3

REPORT INFORMATION
  Report Type: 
  Country: None (occurrence: None)
  Receive Date: 20100817
  Receipt Date: 20100809
  Transmission Date: 20110219
  Serious: Yes (Other)
  Sender: FDA-Public Use
  Company Number: TH-TEVA-244337ISR

PATIENT
  Age: 2 Year
  Sex: Female

DRUGS (2)
  1. CYCLOSPORINE [Suspect]
     Indication: SYSTEMIC LUPUS ERYTHEMATOSUS
  2. ASPARAGINASE [Suspect]
     Indication: SYSTEMIC LUPUS ERYTHEMATOSUS
     Dosage: 800U TIW AT WK 2 AND 3
     Route: 030

REACTIONS (1)
  - TYPE I HYPERSENSITIVITY [None]
